FAERS Safety Report 16219099 (Version 3)
Quarter: 2019Q4

REPORT INFORMATION
  Report Type: Spontaneous
  Country: US (occurrence: US)
  Receive Date: 20190419
  Receipt Date: 20191213
  Transmission Date: 20200122
  Serious: Yes (Death, Hospitalization, Other)
  Sender: FDA-Public Use
  Company Number: US-ASTRAZENECA-2019SE10860

PATIENT
  Age: 64 Year
  Sex: Female
  Weight: 121.1 kg

DRUGS (83)
  1. NEXIUM [Suspect]
     Active Substance: ESOMEPRAZOLE MAGNESIUM
     Indication: GASTROOESOPHAGEAL REFLUX DISEASE
     Route: 048
     Dates: start: 20110907
  2. OMEPRAZOLE. [Suspect]
     Active Substance: OMEPRAZOLE
     Route: 048
     Dates: start: 20141024
  3. PROTONIX [Suspect]
     Active Substance: PANTOPRAZOLE SODIUM
     Dosage: 40 MG
     Route: 065
     Dates: start: 20080701
  4. HYDROCODON-ACETAMINOPH [Concomitant]
     Indication: PAIN MANAGEMENT
     Dates: start: 20151004
  5. SIMVASTATIN. [Concomitant]
     Active Substance: SIMVASTATIN
     Dates: start: 20150504
  6. AMIODARONE [Concomitant]
     Active Substance: AMIODARONE
     Route: 048
     Dates: start: 20171129
  7. LIDODERM [Concomitant]
     Active Substance: LIDOCAINE
     Dates: start: 20130524
  8. NEXIUM [Suspect]
     Active Substance: ESOMEPRAZOLE MAGNESIUM
     Indication: GASTROOESOPHAGEAL REFLUX DISEASE
     Route: 048
     Dates: start: 20080701
  9. NEXIUM [Suspect]
     Active Substance: ESOMEPRAZOLE MAGNESIUM
     Indication: GASTROOESOPHAGEAL REFLUX DISEASE
     Route: 048
     Dates: start: 20081222
  10. OMEPRAZOLE. [Suspect]
     Active Substance: OMEPRAZOLE
     Route: 048
     Dates: start: 20150504
  11. ZOLPIDEM [Concomitant]
     Active Substance: ZOLPIDEM TARTRATE
  12. MORPHINE SULFATE. [Concomitant]
     Active Substance: MORPHINE SULFATE
     Indication: PAIN MANAGEMENT
     Dosage: 60 MG
     Dates: start: 20131018, end: 20171202
  13. VISTARIL [Concomitant]
     Active Substance: HYDROXYZINE PAMOATE
     Indication: PAIN
     Route: 065
     Dates: start: 20081222
  14. HYDRALAZINE HCL [Concomitant]
     Active Substance: HYDRALAZINE HYDROCHLORIDE
     Route: 048
     Dates: start: 20150504
  15. CEPHALEXIN. [Concomitant]
     Active Substance: CEPHALEXIN
     Dates: start: 20110910
  16. NEXIUM [Suspect]
     Active Substance: ESOMEPRAZOLE MAGNESIUM
     Indication: GASTROOESOPHAGEAL REFLUX DISEASE
     Route: 048
     Dates: start: 20110716
  17. OMEPRAZOLE. [Suspect]
     Active Substance: OMEPRAZOLE
     Route: 048
     Dates: start: 20160808
  18. DIAZEPAM. [Concomitant]
     Active Substance: DIAZEPAM
     Indication: ANXIETY
     Dosage: 2 MG
     Route: 065
     Dates: start: 20111010, end: 20160711
  19. DIAZEPAM. [Concomitant]
     Active Substance: DIAZEPAM
     Indication: ANXIETY
     Route: 048
     Dates: start: 20160711
  20. ISOSORBIDE. [Concomitant]
     Active Substance: ISOSORBIDE
     Indication: ANGINA PECTORIS
     Dosage: 30 MG
     Dates: start: 20170217, end: 20171031
  21. CLOPIDOGREL [Concomitant]
     Active Substance: CLOPIDOGREL BISULFATE
     Indication: COAGULOPATHY
     Dosage: 75 MG
     Dates: start: 20170217, end: 20170317
  22. AMLODIPINE BESYLATE. [Concomitant]
     Active Substance: AMLODIPINE BESYLATE
     Indication: ANGINA PECTORIS
     Dosage: 10 MG
     Dates: start: 20170217, end: 20170317
  23. FERROUS SULFATE. [Concomitant]
     Active Substance: FERROUS SULFATE
     Indication: ANAEMIA
     Dosage: 325 MG
     Dates: start: 20171031, end: 20171130
  24. ZOFRAN [Concomitant]
     Active Substance: ONDANSETRON HYDROCHLORIDE
     Dosage: 4 MG
     Route: 065
     Dates: start: 20080701
  25. XANAX [Concomitant]
     Active Substance: ALPRAZOLAM
     Route: 048
     Dates: start: 20081222
  26. METOPROLOL SUCCINATE. [Concomitant]
     Active Substance: METOPROLOL SUCCINATE
     Dates: start: 20081222
  27. WARFARIN SODIUM. [Concomitant]
     Active Substance: WARFARIN SODIUM
     Route: 048
     Dates: start: 20150504
  28. POTASSIUM CHLORIDE. [Concomitant]
     Active Substance: POTASSIUM CHLORIDE
     Dates: start: 20140910
  29. D-AMPHETAMINE [Concomitant]
     Active Substance: DEXTROAMPHETAMINE
     Dates: start: 20150717
  30. AMOXICILLIN. [Concomitant]
     Active Substance: AMOXICILLIN
     Dates: start: 20121015
  31. METRONIDAZOLE. [Concomitant]
     Active Substance: METRONIDAZOLE
     Dates: start: 20100928
  32. OMEPRAZOLE. [Suspect]
     Active Substance: OMEPRAZOLE
     Route: 048
     Dates: start: 20170221
  33. OMEPRAZOLE. [Suspect]
     Active Substance: OMEPRAZOLE
     Route: 048
     Dates: start: 20150120
  34. OMEPRAZOLE. [Suspect]
     Active Substance: OMEPRAZOLE
     Route: 048
     Dates: start: 20140307
  35. PROTONIX [Suspect]
     Active Substance: PANTOPRAZOLE SODIUM
     Route: 065
  36. ELIQUIS [Concomitant]
     Active Substance: APIXABAN
     Indication: COAGULOPATHY
     Dosage: 5 MG
     Dates: start: 20171031, end: 20171130
  37. FIORICET [Concomitant]
     Active Substance: ACETAMINOPHEN\BUTALBITAL\CAFFEINE
     Indication: HEADACHE
     Dosage: 40 MG
     Dates: start: 20151218, end: 20160408
  38. ASPIRIN. [Concomitant]
     Active Substance: ASPIRIN
     Indication: COAGULOPATHY
     Route: 065
  39. ASPIRIN. [Concomitant]
     Active Substance: ASPIRIN
     Indication: COAGULOPATHY
     Dosage: 2 MG
     Route: 065
     Dates: start: 20111010, end: 20160711
  40. VICODIN [Concomitant]
     Active Substance: ACETAMINOPHEN\HYDROCODONE BITARTRATE
     Route: 065
     Dates: start: 20080701
  41. ESCITALOPRAM [Concomitant]
     Active Substance: ESCITALOPRAM OXALATE
     Dates: start: 20120322
  42. NEXIUM [Suspect]
     Active Substance: ESOMEPRAZOLE MAGNESIUM
     Indication: GASTROOESOPHAGEAL REFLUX DISEASE
     Route: 048
     Dates: start: 20130129
  43. OMEPRAZOLE. [Suspect]
     Active Substance: OMEPRAZOLE
     Route: 048
  44. LANTUS [Concomitant]
     Active Substance: INSULIN GLARGINE
     Dates: start: 20080701
  45. NARCAN [Concomitant]
     Active Substance: NALOXONE HYDROCHLORIDE
     Indication: OVERDOSE
     Dosage: 4 MG
     Dates: start: 20160606
  46. AMLODIPINE BESYLATE. [Concomitant]
     Active Substance: AMLODIPINE BESYLATE
     Indication: HYPERTENSION
     Dosage: 10 MG
     Dates: start: 20170217, end: 20170317
  47. CVS MAGNESIUM [Concomitant]
     Indication: CONSTIPATION
     Dosage: 500 MG
     Dates: start: 20170422
  48. PHENERGAN [Concomitant]
     Active Substance: PROMETHAZINE HYDROCHLORIDE
     Dosage: 25 MG
     Route: 065
     Dates: start: 20080701
  49. ZESTORETIC [Concomitant]
     Active Substance: HYDROCHLOROTHIAZIDE\LISINOPRIL
     Route: 065
     Dates: start: 20081222
  50. DARVOCET [Concomitant]
     Active Substance: ACETAMINOPHEN\PROPOXYPHENE HYDROCHLORIDE
     Indication: PAIN
     Route: 065
     Dates: start: 20081222
  51. PERCOCET [Concomitant]
     Active Substance: ACETAMINOPHEN\OXYCODONE HYDROCHLORIDE
     Indication: PAIN
     Route: 065
     Dates: start: 20081222
  52. CARVEDILOL. [Concomitant]
     Active Substance: CARVEDILOL
     Route: 048
     Dates: start: 20150504
  53. NOVOLOG [Concomitant]
     Active Substance: INSULIN ASPART
     Dates: start: 20150504
  54. ISOSORBIDE MONONITRATE. [Concomitant]
     Active Substance: ISOSORBIDE MONONITRATE
     Dates: start: 20171129
  55. VOLTAREN [Concomitant]
     Active Substance: DICLOFENAC SODIUM
     Dates: start: 20150116
  56. LABETALOL [Concomitant]
     Active Substance: LABETALOL\LABETALOL HYDROCHLORIDE
     Indication: HYPERTENSION
     Dosage: 300 MG
     Dates: start: 20170217, end: 20170320
  57. NITROGLYCERIN. [Concomitant]
     Active Substance: NITROGLYCERIN
     Indication: CHEST PAIN
     Dosage: 0.4 MG
     Dates: start: 20171031
  58. PROVIGIL [Concomitant]
     Active Substance: MODAFINIL
     Route: 065
     Dates: start: 20080701
  59. LEXAPRO [Concomitant]
     Active Substance: ESCITALOPRAM OXALATE
     Route: 065
     Dates: start: 20080701
  60. REGLAN [Concomitant]
     Active Substance: METOCLOPRAMIDE HYDROCHLORIDE
     Dosage: 10 MG
     Route: 065
     Dates: start: 20080701
  61. VITAMIN D3 [Concomitant]
     Active Substance: CHOLECALCIFEROL
     Dates: start: 20171129
  62. CIPROFLOXACIN. [Concomitant]
     Active Substance: CIPROFLOXACIN
     Dates: start: 20140602
  63. NEXIUM [Suspect]
     Active Substance: ESOMEPRAZOLE MAGNESIUM
     Indication: GASTROOESOPHAGEAL REFLUX DISEASE
     Route: 048
  64. FLEXERIL [Concomitant]
     Active Substance: CYCLOBENZAPRINE HYDROCHLORIDE
     Indication: MUSCLE SPASMS
     Route: 065
     Dates: start: 20081222
  65. CALCITRIOL. [Concomitant]
     Active Substance: CALCITRIOL
     Dosage: 0.5 MCG; DAILY
     Route: 048
     Dates: start: 20150504
  66. FUROSEMIDE. [Concomitant]
     Active Substance: FUROSEMIDE
     Route: 048
     Dates: start: 20150504
  67. NEXIUM [Suspect]
     Active Substance: ESOMEPRAZOLE MAGNESIUM
     Indication: GASTROOESOPHAGEAL REFLUX DISEASE
     Dosage: 40 MG
     Route: 048
     Dates: start: 20120301, end: 20121201
  68. NEXIUM [Suspect]
     Active Substance: ESOMEPRAZOLE MAGNESIUM
     Indication: GASTROOESOPHAGEAL REFLUX DISEASE
     Route: 048
     Dates: start: 20140609
  69. NEXIUM [Suspect]
     Active Substance: ESOMEPRAZOLE MAGNESIUM
     Indication: GASTROOESOPHAGEAL REFLUX DISEASE
     Route: 048
     Dates: start: 20120104
  70. NEXIUM [Suspect]
     Active Substance: ESOMEPRAZOLE MAGNESIUM
     Indication: GASTROOESOPHAGEAL REFLUX DISEASE
     Route: 048
     Dates: start: 20100102
  71. DIAZEPAM. [Concomitant]
     Active Substance: DIAZEPAM
     Indication: ANXIETY
     Route: 065
  72. MORPHINE SULFATE. [Concomitant]
     Active Substance: MORPHINE SULFATE
     Indication: PAIN MANAGEMENT
     Dosage: 15 MG
     Dates: start: 20131018, end: 20171202
  73. GABAPENTIN. [Concomitant]
     Active Substance: GABAPENTIN
     Indication: NEURALGIA
     Dosage: 300 MG
     Dates: start: 20171006, end: 20171129
  74. DOCUSATE SODIUM. [Concomitant]
     Active Substance: DOCUSATE SODIUM
     Indication: FAECES SOFT
     Dosage: 100 MG
     Dates: start: 20171031, end: 20171130
  75. IMITREX [Concomitant]
     Active Substance: SUMATRIPTAN SUCCINATE
     Indication: MIGRAINE
     Dosage: 100 MG
     Dates: start: 20151218
  76. TIZANIDINE. [Concomitant]
     Active Substance: TIZANIDINE
     Dosage: 4 MG
     Route: 065
     Dates: start: 20080701
  77. VIVELLE [Concomitant]
     Active Substance: ESTRADIOL
     Dosage: 0.1 MG
     Route: 065
     Dates: start: 20080701
  78. LOPRESSOR [Concomitant]
     Active Substance: METOPROLOL TARTRATE
     Route: 065
     Dates: start: 20080701
  79. LISINOPRIL. [Concomitant]
     Active Substance: LISINOPRIL
     Dosage: 20/25 MG; TWO TIMES A DAY
     Route: 065
     Dates: start: 20080701
  80. DEMEROL [Concomitant]
     Active Substance: MEPERIDINE HYDROCHLORIDE
     Dosage: 50 MG
     Route: 065
     Dates: start: 20080701
  81. VITAMIN E [Concomitant]
     Active Substance: .ALPHA.-TOCOPHEROL
     Dates: start: 20150504
  82. PROMETHAZINE [Concomitant]
     Active Substance: PROMETHAZINE HYDROCHLORIDE
     Dates: start: 20171129
  83. MICROLET [Concomitant]
     Dates: start: 20130331

REACTIONS (10)
  - Renal failure [Unknown]
  - Arteriosclerosis coronary artery [Fatal]
  - Atrial fibrillation [Fatal]
  - Cardiac failure [Fatal]
  - Chronic kidney disease [Not Recovered/Not Resolved]
  - Acute kidney injury [Unknown]
  - Hyperparathyroidism secondary [Unknown]
  - Nephrogenic anaemia [Unknown]
  - Congenital heart valve disorder [Fatal]
  - Rebound acid hypersecretion [Unknown]

NARRATIVE: CASE EVENT DATE: 20150504
